FAERS Safety Report 5634209-6 (Version None)
Quarter: 2008Q1

REPORT INFORMATION
  Report Type: 
  Country: None (occurrence: None)
  Receive Date: 20080219
  Receipt Date: 20080208
  Transmission Date: 20080703
  Serious: Yes (Death)
  Sender: FDA-Public Use
  Company Number: 18371

PATIENT
  Sex: Female

DRUGS (3)
  1. CISPLATIN [Suspect]
  2. EPIRUBICIN [Suspect]
  3. XELODA [Suspect]

REACTIONS (1)
  - RENAL FAILURE [None]
